FAERS Safety Report 4314918-1 (Version None)
Quarter: 2004Q1

REPORT INFORMATION
  Report Type: 
  Country: None (occurrence: None)
  Receive Date: 20040310
  Receipt Date: 20040310
  Transmission Date: 20041129
  Serious: Yes (Other)
  Sender: FDA-Public Use
  Company Number: None

PATIENT
  Age: 39 Year
  Sex: Female
  Weight: 63.5036 kg

DRUGS (1)
  1. NEURONTIN [Suspect]
     Indication: MIGRAINE
     Dosage: 1 PO TID
     Route: 048
     Dates: start: 20020820, end: 20030101

REACTIONS (1)
  - DYSPNOEA [None]
